FAERS Safety Report 5515074-4 (Version None)
Quarter: 2007Q4

REPORT INFORMATION
  Report Type: 
  Country: None (occurrence: None)
  Receive Date: 20071113
  Receipt Date: 20061215
  Transmission Date: 20080405
  Serious: No
  Sender: FDA-Public Use
  Company Number: A0631759A

PATIENT
  Sex: Female

DRUGS (7)
  1. COREG [Suspect]
     Dosage: 6.25MG THREE TIMES PER DAY
     Route: 048
  2. BENICAR [Concomitant]
  3. PLAVIX [Concomitant]
  4. ASPIRIN [Concomitant]
  5. AVANDAMET [Concomitant]
  6. SYNTHROID [Concomitant]
  7. CRESTOR [Concomitant]

REACTIONS (2)
  - CHEST PAIN [None]
  - TINNITUS [None]
